FAERS Safety Report 8251577-X (Version None)
Quarter: 2012Q1

REPORT INFORMATION
  Report Type: 
  Country: None (occurrence: None)
  Receive Date: 20120328
  Receipt Date: 20120314
  Transmission Date: 20120608
  Serious: Yes (Other)
  Sender: FDA-Public Use
  Company Number: 2012MA003368

PATIENT
  Sex: Female

DRUGS (2)
  1. PANTOPRAZOLE SODIUM [Suspect]
     Dosage: PO
     Route: 048
  2. NEXIUM [Concomitant]

REACTIONS (3)
  - GASTROINTESTINAL STENOSIS [None]
  - PRODUCT SUBSTITUTION ISSUE [None]
  - DRUG INEFFECTIVE [None]
